FAERS Safety Report 4440828-5 (Version None)
Quarter: 2004Q3

REPORT INFORMATION
  Report Type: 
  Country: None (occurrence: None)
  Receive Date: 20040903
  Receipt Date: 20030626
  Transmission Date: 20050211
  Serious: Yes (Hospitalization)
  Sender: FDA-Public Use
  Company Number: FR-GLAXOSMITHKLINE-B0303004A

PATIENT
  Age: 50 Year
  Sex: Male

DRUGS (2)
  1. COMBIVIR [Suspect]
     Route: 048
     Dates: start: 20021119, end: 20021219
  2. VIRACEPT [Suspect]
     Route: 048
     Dates: start: 20021119, end: 20021219

REACTIONS (1)
  - THROMBOCYTOPENIA [None]
